FAERS Safety Report 5326740-8 (Version None)
Quarter: 2007Q2

REPORT INFORMATION
  Report Type: 
  Country: None (occurrence: None)
  Receive Date: 20070516
  Receipt Date: 20070507
  Transmission Date: 20071010
  Serious: Yes (Other)
  Sender: FDA-Public Use
  Company Number: US-PFIZER INC-2007006865

PATIENT
  Sex: Female

DRUGS (2)
  1. DILANTIN [Suspect]
     Indication: GRAND MAL CONVULSION
  2. REBIF [Suspect]
     Indication: MULTIPLE SCLEROSIS
     Route: 058
     Dates: start: 20021009

REACTIONS (7)
  - ANTICONVULSANT DRUG LEVEL DECREASED [None]
  - BURNING SENSATION [None]
  - GRAND MAL CONVULSION [None]
  - HEADACHE [None]
  - HYPOAESTHESIA [None]
  - MYALGIA [None]
  - RASH PRURITIC [None]
